FAERS Safety Report 10203779 (Version 1)
Quarter: 2014Q2

REPORT INFORMATION
  Report Type: Spontaneous
  Country: SE (occurrence: SE)
  Receive Date: 20140529
  Receipt Date: 20140529
  Transmission Date: 20141212
  Serious: Yes (Hospitalization, Other)
  Sender: FDA-Public Use
  Company Number: SE-ELI_LILLY_AND_COMPANY-SE201405007251

PATIENT
  Age: 77 Year
  Sex: Female

DRUGS (19)
  1. GEMZAR [Suspect]
     Indication: PANCREATIC CARCINOMA
     Dosage: 1500 MG/M2, CYCLICAL
     Route: 065
     Dates: start: 201302, end: 201308
  2. GEMZAR [Suspect]
     Dosage: 1500 MG/M2, CYCLICAL
     Route: 065
     Dates: start: 201309, end: 20131120
  3. OMEPRAZOLE [Concomitant]
  4. CILAXORAL [Concomitant]
  5. INNOHEP [Concomitant]
  6. FURIX [Concomitant]
  7. METOPROLOL SANDOZ [Concomitant]
  8. BETAPRED [Concomitant]
  9. OXYCONTIN [Concomitant]
  10. IMOVANE [Concomitant]
  11. PROPAVAN [Concomitant]
  12. METADON RECIP [Concomitant]
  13. DULCOLAX                           /00064401/ [Concomitant]
  14. LAKTULOS [Concomitant]
  15. NITROLINGUAL [Concomitant]
  16. OXYNORM [Concomitant]
  17. PANODIL [Concomitant]
  18. OXASCAND [Concomitant]
  19. ACETYLCYSTEINE [Concomitant]

REACTIONS (4)
  - Pericarditis constrictive [Unknown]
  - Circulatory collapse [Unknown]
  - Cardiac failure [Unknown]
  - Pneumonia [Unknown]
